FAERS Safety Report 5346540-2 (Version None)
Quarter: 2007Q2

REPORT INFORMATION
  Report Type: 
  Country: None (occurrence: None)
  Receive Date: 20070430
  Receipt Date: 20070119
  Transmission Date: 20071010
  Serious: No
  Sender: FDA-Public Use
  Company Number: CLOF-10400

PATIENT
  Age: 48 Year
  Sex: Female
  Weight: 94.8018 kg

DRUGS (9)
  1. CLOLAR [Suspect]
     Indication: ACUTE LYMPHOCYTIC LEUKAEMIA
     Dosage: 82 MG DAILY IV
     Route: 042
     Dates: start: 20061129, end: 20061203
  2. TAMBOCOR [Concomitant]
  3. PROTONIX [Concomitant]
  4. TRIMETHOPRIM + SULFAMETHOXAZOLE [Concomitant]
  5. ALLOPURINOL [Concomitant]
  6. CLINDAMYCIN HCL [Concomitant]
  7. LOPRESSOR [Concomitant]
  8. DILAUDID [Concomitant]
  9. AMBIEN [Concomitant]

REACTIONS (4)
  - DIARRHOEA [None]
  - HEADACHE [None]
  - NAUSEA [None]
  - VOMITING [None]
